FAERS Safety Report 22279712 (Version 1)
Quarter: 2023Q2

REPORT INFORMATION
  Report Type: Spontaneous
  Country: US (occurrence: US)
  Receive Date: 20230503
  Receipt Date: 20230503
  Transmission Date: 20230722
  Serious: Yes (Death)
  Sender: FDA-Public Use
  Company Number: US-JNJFOC-20230459670

PATIENT
  Sex: Male
  Weight: 70 kg

DRUGS (1)
  1. CARVYKTI [Suspect]
     Active Substance: CILTACABTAGENE AUTOLEUCEL
     Indication: Plasma cell myeloma
     Route: 042

REACTIONS (2)
  - Sepsis [Fatal]
  - Immune effector cell-associated neurotoxicity syndrome [Fatal]
